FAERS Safety Report 8826337 (Version 1)
Quarter: 2012Q4

REPORT INFORMATION
  Report Type: Report from Study
  Country: AT (occurrence: AT)
  Receive Date: 20121008
  Receipt Date: 20121008
  Transmission Date: 20130627
  Serious: Yes (Hospitalization)
  Sender: FDA-Public Use
  Company Number: AT-SANOFI-AVENTIS-2012SA072926

PATIENT
  Sex: Female
  Weight: 78 kg

DRUGS (6)
  1. DOCETAXEL [Suspect]
     Indication: MALIGNANT BREAST NEOPLASM
     Route: 042
     Dates: start: 20120907
  2. TRASTUZUMAB [Suspect]
     Indication: MALIGNANT BREAST NEOPLASM
     Route: 042
     Dates: start: 20120907
  3. BEVACIZUMAB [Suspect]
     Indication: MALIGNANT BREAST NEOPLASM
     Route: 042
     Dates: start: 20120907
  4. DOXORUBICIN [Suspect]
     Indication: MALIGNANT BREAST NEOPLASM
     Route: 042
     Dates: start: 20120907
  5. TAZONAM [Concomitant]
     Route: 042
     Dates: start: 20120915, end: 20120918
  6. UNASYN [Concomitant]
     Route: 048
     Dates: start: 20120918, end: 20120920

REACTIONS (3)
  - Oropharyngeal pain [Recovered/Resolved]
  - Fatigue [Recovered/Resolved]
  - Febrile neutropenia [Recovered/Resolved]
